FAERS Safety Report 7199824-X (Version None)
Quarter: 2010Q4

REPORT INFORMATION
  Report Type: 
  Country: None (occurrence: None)
  Receive Date: 20101228
  Receipt Date: 20101220
  Transmission Date: 20110411
  Serious: Yes (Hospitalization, Other)
  Sender: FDA-Public Use
  Company Number: BR-ROCHE-749680

PATIENT
  Sex: Female
  Weight: 67 kg

DRUGS (5)
  1. BONIVA [Suspect]
     Indication: OSTEOPOROSIS
     Route: 065
     Dates: start: 20080101
  2. OMEPRAZOLE [Concomitant]
     Dosage: INDICATION: STOMACH
  3. PERIDAL [Concomitant]
     Indication: ILL-DEFINED DISORDER
  4. SUSTRATE [Concomitant]
     Dosage: INDICATION: HEART
  5. EXELON [Concomitant]
     Dosage: ONE PATCH A DAY

REACTIONS (3)
  - ENCEPHALITIS VIRAL [None]
  - HYPERTENSION [None]
  - TRACHEAL DISORDER [None]
